FAERS Safety Report 9737026 (Version 1)
Quarter: 2013Q4

REPORT INFORMATION
  Report Type: Spontaneous
  Country: US (occurrence: US)
  Receive Date: 20131206
  Receipt Date: 20131206
  Transmission Date: 20140711
  Serious: No
  Sender: FDA-Public Use
  Company Number: US-GILEAD-2009-0024221

PATIENT
  Sex: Female
  Weight: 61.23 kg

DRUGS (21)
  1. LETAIRIS [Suspect]
     Indication: PULMONARY ARTERIAL HYPERTENSION
     Route: 048
     Dates: start: 20080730
  2. REVATIO [Concomitant]
  3. FLOLAN [Concomitant]
  4. FLOLAN DILUENT [Concomitant]
  5. DILAUDID [Concomitant]
  6. COUMADIN [Concomitant]
  7. ZOLOFT [Concomitant]
  8. CLARITIN [Concomitant]
  9. HYDRCODONE/APAP [Concomitant]
  10. SPIRINOLACTONE [Concomitant]
  11. METOLAZONE [Concomitant]
  12. CRESTOR [Concomitant]
  13. LASIX [Concomitant]
  14. COLCHICINE [Concomitant]
  15. ALLOPURINOL [Concomitant]
  16. INDOMETHACIN [Concomitant]
  17. XANAX [Concomitant]
  18. DIGOXIN [Concomitant]
  19. AMITRIPTYLINE [Concomitant]
  20. POTASSIUM [Concomitant]
  21. IRON [Concomitant]

REACTIONS (1)
  - Oedema peripheral [Unknown]
